FAERS Safety Report 12325702 (Version 1)
Quarter: 2016Q2

REPORT INFORMATION
  Report Type: Spontaneous
  Country: US (occurrence: US)
  Receive Date: 20160503
  Receipt Date: 20160503
  Transmission Date: 20160815
  Serious: Yes (Other)
  Sender: FDA-Public Use
  Company Number: US-GLENMARK PHARMACEUTICALS INC, USA.-2015GMK018606

PATIENT

DRUGS (4)
  1. TOPIRAMATE. [Suspect]
     Active Substance: TOPIRAMATE
     Dosage: 3 DF, OD
     Route: 048
     Dates: start: 201401, end: 201402
  2. TYLENOL [Concomitant]
     Active Substance: ACETAMINOPHEN
     Indication: PAIN
     Dosage: UNK
     Route: 048
  3. TOPIRAMATE. [Suspect]
     Active Substance: TOPIRAMATE
     Indication: MIGRAINE
     Dosage: 1 DF, QD
     Route: 048
     Dates: start: 201401
  4. GABAPENTIN. [Concomitant]
     Active Substance: GABAPENTIN
     Indication: PAIN
     Dosage: UNK
     Route: 048
     Dates: start: 201401

REACTIONS (16)
  - Glaucoma [Recovered/Resolved]
  - Mood swings [Recovered/Resolved]
  - Diplopia [Recovered/Resolved]
  - Off label use [Unknown]
  - Tremor [Recovered/Resolved]
  - Photophobia [Recovered/Resolved]
  - Intraocular pressure fluctuation [Recovered/Resolved]
  - Depression [Recovered/Resolved]
  - Amnesia [Recovered/Resolved]
  - Visual impairment [Recovered/Resolved]
  - Blindness transient [Recovered/Resolved]
  - Tinnitus [Recovered/Resolved]
  - Vitreous floaters [Not Recovered/Not Resolved]
  - Anxiety [Recovered/Resolved]
  - Hallucination [Recovered/Resolved]
  - Vision blurred [Recovered/Resolved]

NARRATIVE: CASE EVENT DATE: 201401
